FAERS Safety Report 15261635 (Version 2)
Quarter: 2018Q3

REPORT INFORMATION
  Report Type: Spontaneous
  Country: US (occurrence: US)
  Receive Date: 20180809
  Receipt Date: 20180816
  Transmission Date: 20181010
  Serious: Yes (Other)
  Sender: FDA-Public Use
  Company Number: US-ASTRAZENECA-2018SE99479

PATIENT
  Sex: Male
  Weight: 79.4 kg

DRUGS (4)
  1. ASPIRIN. [Concomitant]
     Active Substance: ASPIRIN
     Route: 048
  2. BRILINTA [Suspect]
     Active Substance: TICAGRELOR
     Indication: MYOCARDIAL INFARCTION
     Route: 048
  3. BRILINTA [Suspect]
     Active Substance: TICAGRELOR
     Indication: STENT PLACEMENT
     Route: 048
  4. METOPROLOL TARTRATE. [Suspect]
     Active Substance: METOPROLOL TARTRATE
     Route: 048

REACTIONS (7)
  - Blood pressure increased [Unknown]
  - Blood pressure decreased [Unknown]
  - Intentional product use issue [Unknown]
  - Vascular stent thrombosis [Unknown]
  - Dizziness [Unknown]
  - Dyspnoea [Unknown]
  - Asthenia [Unknown]
